FAERS Safety Report 6567898-2 (Version None)
Quarter: 2010Q1

REPORT INFORMATION
  Report Type: 
  Country: None (occurrence: None)
  Receive Date: 20100203
  Receipt Date: 20100122
  Transmission Date: 20100710
  Serious: Yes (Other)
  Sender: FDA-Public Use
  Company Number: PHHY2010FR03800

PATIENT
  Sex: Male

DRUGS (2)
  1. LEPONEX [Suspect]
     Dosage: 1 DF, BID
     Route: 048
     Dates: start: 20061121
  2. TERCIAN [Suspect]
     Dosage: 100 MG, QD
     Route: 048
     Dates: start: 20050303, end: 20090223

REACTIONS (4)
  - ACTIVATED PARTIAL THROMBOPLASTIN TIME PROLONGED [None]
  - ANTIPHOSPHOLIPID ANTIBODIES POSITIVE [None]
  - KAOLIN CEPHALIN CLOTTING TIME PROLONGED [None]
  - PHLEBITIS [None]
